FAERS Safety Report 7132167-9 (Version None)
Quarter: 2010Q4

REPORT INFORMATION
  Report Type: 
  Country: None (occurrence: None)
  Receive Date: 20101129
  Receipt Date: 20101129
  Transmission Date: 20110411
  Serious: Yes (Disabling)
  Sender: FDA-Public Use
  Company Number: None

PATIENT
  Age: 62 Year
  Sex: Male
  Weight: 77.1115 kg

DRUGS (3)
  1. SUBOXONE [Suspect]
     Indication: DRUG DEPENDENCE
     Dosage: 8MG TWICE A DAY SL
     Route: 060
     Dates: start: 20050101
  2. CYMBALTA [Concomitant]
  3. LISINOPRIL [Concomitant]

REACTIONS (1)
  - DENTAL CARIES [None]
